FAERS Safety Report 25592882 (Version 1)
Quarter: 2025Q3

REPORT INFORMATION
  Report Type: Spontaneous
  Country: US (occurrence: US)
  Receive Date: 20250722
  Receipt Date: 20250722
  Transmission Date: 20251020
  Serious: Yes (Other)
  Sender: BAYER HEALTHCARE PHARMACEUTICALS INC.
  Company Number: US-BAYER-2025A094203

PATIENT
  Age: 63 Year
  Sex: Female

DRUGS (13)
  1. ADEMPAS [Suspect]
     Active Substance: RIOCIGUAT
     Indication: Pulmonary hypertension
     Dosage: 2.5 MG, TID
     Route: 048
     Dates: start: 20230131
  2. ALBUTEROL [Concomitant]
     Active Substance: ALBUTEROL
  3. FUROSEMIDE [Concomitant]
     Active Substance: FUROSEMIDE
  4. ALBUTEROL SULFATE [Concomitant]
     Active Substance: ALBUTEROL SULFATE
  5. ATORVASTATIN [Concomitant]
     Active Substance: ATORVASTATIN
  6. WARFARIN [Concomitant]
     Active Substance: WARFARIN
  7. LIDOCAINE [Concomitant]
     Active Substance: LIDOCAINE
  8. TIZANIDINE [Concomitant]
     Active Substance: TIZANIDINE
  9. ESTRACE [Concomitant]
     Active Substance: ESTRADIOL
  10. HYDROXYZINE [Concomitant]
     Active Substance: HYDROXYZINE HYDROCHLORIDE
  11. SENNA [Concomitant]
     Active Substance: SENNOSIDES
  12. HYDROQUINONE [Concomitant]
     Active Substance: HYDROQUINONE
  13. NITROFURANTOIN [Concomitant]
     Active Substance: NITROFURANTOIN

REACTIONS (3)
  - Dizziness [Recovering/Resolving]
  - Orthostatic hypotension [Recovering/Resolving]
  - Vertigo [Recovering/Resolving]

NARRATIVE: CASE EVENT DATE: 20250711
